FAERS Safety Report 23900377 (Version 1)
Quarter: 2024Q2

REPORT INFORMATION
  Report Type: Spontaneous
  Country: US (occurrence: None)
  Receive Date: 20240526
  Receipt Date: 20240526
  Transmission Date: 20240716
  Serious: No
  Sender: FDA-Public Use
  Company Number: US-ROCHE-3432638

PATIENT
  Sex: Male

DRUGS (2)
  1. OCREVUS [Suspect]
     Active Substance: OCRELIZUMAB
     Indication: Product used for unknown indication
     Route: 065
  2. BRIUMVI [Suspect]
     Active Substance: UBLITUXIMAB-XIIY
     Indication: Product used for unknown indication
     Dosage: DATE OF INFUSION: 11/MAY/2023
     Route: 065

REACTIONS (2)
  - Feeling hot [Unknown]
  - Pyrexia [Unknown]
